FAERS Safety Report 4788952-1 (Version None)
Quarter: 2005Q4

REPORT INFORMATION
  Report Type: 
  Country: None (occurrence: None)
  Receive Date: 20051004
  Receipt Date: 20050923
  Transmission Date: 20060501
  Serious: Yes (Hospitalization)
  Sender: FDA-Public Use
  Company Number: KII-2005-0018764

PATIENT
  Age: 55 Year
  Sex: Female

DRUGS (7)
  1. MORPHINE [Suspect]
     Indication: PAIN
     Dosage: ORAL
     Route: 048
  2. SSRI () [Suspect]
     Indication: DEPRESSION
     Dosage: 80 MG, SEE TEXT, ORAL
     Route: 048
  3. BENZODIAZEPINE DERIVATIVES () [Suspect]
     Dosage: ORAL
     Route: 048
  4. CYCLOBENZAPRINE HCL [Concomitant]
  5. ANTIEPILEPTICS [Concomitant]
  6. ALBUTEROL [Concomitant]
  7. PROTON PUMP INHIBITOR [Concomitant]

REACTIONS (7)
  - ELECTROCARDIOGRAM QT CORRECTED INTERVAL PROLONGED [None]
  - ELECTROCARDIOGRAM QT PROLONGED [None]
  - HAEMATOCRIT DECREASED [None]
  - INADEQUATE ANALGESIA [None]
  - MULTIPLE DRUG OVERDOSE [None]
  - RED BLOOD CELLS URINE [None]
  - SUPRAVENTRICULAR EXTRASYSTOLES [None]
